FAERS Safety Report 21972639 (Version 2)
Quarter: 2023Q1

REPORT INFORMATION
  Report Type: Spontaneous
  Country: US (occurrence: None)
  Receive Date: 20230209
  Receipt Date: 20230227
  Transmission Date: 20230417
  Serious: Yes (Hospitalization)
  Sender: FDA-Public Use
  Company Number: US-Ultragenyx Pharmaceutical Inc.-US-UGNX-23-00065

PATIENT
  Age: 2 Year
  Sex: Male

DRUGS (2)
  1. DOJOLVI [Suspect]
     Active Substance: TRIHEPTANOIN
     Indication: Fatty acid oxidation disorder
     Dosage: 8 ML, 5 TIMES DAILY, VIA ENTERAL ROUTE OF ADMINISTRATION
  2. DOJOLVI [Suspect]
     Active Substance: TRIHEPTANOIN
     Dosage: 8 ML, 5 TIMES DAILY, VIA ENTERAL ROUTE OF ADMINISTRATION

REACTIONS (2)
  - Viral infection [Not Recovered/Not Resolved]
  - Product dispensing error [Unknown]

NARRATIVE: CASE EVENT DATE: 20230114
